FAERS Safety Report 6653192-8 (Version None)
Quarter: 2010Q1

REPORT INFORMATION
  Report Type: 
  Country: None (occurrence: None)
  Receive Date: 20100326
  Receipt Date: 20100319
  Transmission Date: 20100710
  Serious: Yes (Other)
  Sender: FDA-Public Use
  Company Number: US-BRISTOL-MYERS SQUIBB COMPANY-15028962

PATIENT

DRUGS (1)
  1. COUMADIN [Suspect]

REACTIONS (1)
  - BLINDNESS [None]
